FAERS Safety Report 9103641 (Version 2)
Quarter: 2013Q1

REPORT INFORMATION
  Report Type: Spontaneous
  Country: US (occurrence: US)
  Receive Date: 20130219
  Receipt Date: 20130326
  Transmission Date: 20140127
  Serious: Yes (Death, Hospitalization)
  Sender: FDA-Public Use
  Company Number: US-PFIZER INC-2013060211

PATIENT
  Age: 53 Year
  Sex: Male

DRUGS (1)
  1. SUTENT [Suspect]
     Indication: HEPATIC CANCER
     Dosage: 50 MG, 1X/DAY
     Dates: start: 20120820, end: 20130128

REACTIONS (3)
  - Disease progression [Fatal]
  - Hepatic cancer [Fatal]
  - Off label use [Unknown]
